FAERS Safety Report 8367954-2 (Version None)
Quarter: 2012Q2

REPORT INFORMATION
  Report Type: 
  Country: None (occurrence: None)
  Receive Date: 20120517
  Receipt Date: 20120515
  Transmission Date: 20120825
  Serious: Yes (Other)
  Sender: FDA-Public Use
  Company Number: BR-PFIZER INC-2012118736

PATIENT
  Age: 43 Year
  Sex: Female

DRUGS (6)
  1. VARENICLINE TARTRATE [Suspect]
     Indication: TOBACCO USER
     Dosage: UNK
     Route: 048
     Dates: start: 20100101, end: 20100101
  2. VARENICLINE TARTRATE [Suspect]
     Dosage: UNK, 2X/DAY
     Dates: start: 20100101, end: 20100101
  3. TOPIRAMATE [Concomitant]
     Indication: RELAXATION THERAPY
     Dosage: 100 MG, 2X/DAY
  4. CLONAZEPAM [Concomitant]
     Indication: SLEEP DISORDER
     Dosage: 2 MG, 1X/DAY
     Dates: start: 20111201
  5. CITALOPRAM [Concomitant]
     Indication: MOOD ALTERED
     Dosage: 20 MG, 1X/DAY
     Dates: start: 20040101
  6. ALPRAZOLAM [Concomitant]
     Indication: SLEEP DISORDER
     Dosage: 0.5 MG, 1X/DAY
     Dates: start: 20070101, end: 20111201

REACTIONS (1)
  - BIPOLAR DISORDER [None]
